FAERS Safety Report 7970050-7 (Version None)
Quarter: 2011Q4

REPORT INFORMATION
  Report Type: 
  Country: None (occurrence: None)
  Receive Date: 20111212
  Receipt Date: 20110512
  Transmission Date: 20120403
  Serious: No
  Sender: FDA-Public Use
  Company Number: US-BAYER-2011-042485

PATIENT
  Sex: Female
  Weight: 95.238 kg

DRUGS (1)
  1. ALEVE (CAPLET) [Suspect]
     Indication: ARTHRITIS
     Dosage: 2 DF, QD, BOTTLE COUNT 50S
     Route: 048
     Dates: start: 20110428, end: 20110511

REACTIONS (1)
  - NO ADVERSE EVENT [None]
